FAERS Safety Report 5371086-5 (Version None)
Quarter: 2007Q2

REPORT INFORMATION
  Report Type: 
  Country: None (occurrence: None)
  Receive Date: 20070622
  Receipt Date: 20070615
  Transmission Date: 20071010
  Serious: Yes (Other)
  Sender: FDA-Public Use
  Company Number: 6034599

PATIENT
  Age: 73 Year
  Sex: Male

DRUGS (12)
  1. BISOPROLOL FUMARATE [Suspect]
     Indication: DRUG USE FOR UNKNOWN INDICATION
  2. PREVACID [Concomitant]
  3. LASIX [Concomitant]
  4. LIPITOR [Concomitant]
  5. FLOVENT [Concomitant]
  6. DIAMICRON (GLICIAZIDE) [Concomitant]
  7. METFORMIN (METFORMIN) [Concomitant]
  8. DIGOXIN [Concomitant]
  9. NITROGLYCERIN ^A. L.^(GLYCERYL TRINITRATE) [Concomitant]
  10. COMBIVENT (SALBUTAMOL, IPRATROPIUM BROMIDE) [Concomitant]
  11. ALTACE [Concomitant]
  12. ASPIRIN [Concomitant]

REACTIONS (2)
  - BLISTER [None]
  - LEUKOCYTOCLASTIC VASCULITIS [None]
